FAERS Safety Report 23059091 (Version 1)
Quarter: 2023Q4

REPORT INFORMATION
  Report Type: Spontaneous
  Country: US (occurrence: US)
  Receive Date: 20231012
  Receipt Date: 20231012
  Transmission Date: 20240109
  Serious: Yes (Hospitalization, Other)
  Sender: FDA-Public Use
  Company Number: US-APOTEX-2023AP015208

PATIENT
  Age: 31 Year
  Sex: Male

DRUGS (1)
  1. DASATINIB [Suspect]
     Active Substance: DASATINIB
     Indication: Minimal residual disease
     Dosage: UNK
     Route: 065

REACTIONS (2)
  - Right ventricular dilatation [Recovered/Resolved]
  - Pulmonary arterial hypertension [Recovered/Resolved]
